FAERS Safety Report 8581590-4 (Version None)
Quarter: 2012Q3

REPORT INFORMATION
  Report Type: 
  Country: None (occurrence: None)
  Receive Date: 20120809
  Receipt Date: 20120801
  Transmission Date: 20120928
  Serious: Yes (Hospitalization, Other)
  Sender: FDA-Public Use
  Company Number: CN-ASTELLAS-2012US006679

PATIENT
  Age: 72 Year
  Sex: Male

DRUGS (1)
  1. TARCEVA [Suspect]
     Indication: NON-SMALL CELL LUNG CANCER
     Dosage: 150 MG, UID/QD
     Route: 048
     Dates: start: 20110101

REACTIONS (5)
  - LUNG INFECTION [None]
  - INTERSTITIAL LUNG DISEASE [None]
  - TYPE 2 DIABETES MELLITUS [None]
  - METASTASES TO LUNG [None]
  - HYPERTENSION [None]
